FAERS Safety Report 19290756 (Version 1)
Quarter: 2021Q2

REPORT INFORMATION
  Report Type: Report from Study
  Country: None (occurrence: US)
  Receive Date: 20210521
  Receipt Date: 20210521
  Transmission Date: 20210717
  Serious: Yes (Hospitalization)
  Sender: FDA-Public Use
  Company Number: US-ABBVIE-21K-163-3910340-00

PATIENT
  Age: 33 Year
  Sex: Male
  Weight: 75.36 kg

DRUGS (8)
  1. TURMERIC [Concomitant]
     Active Substance: HERBALS\TURMERIC
     Indication: PRODUCT USED FOR UNKNOWN INDICATION
     Route: 065
  2. CLOBETASOL PROPIONATE E [Concomitant]
     Indication: PRODUCT USED FOR UNKNOWN INDICATION
     Dosage: 0.05% EX FOAM
     Route: 065
  3. CEFTRIAXONE. [Concomitant]
     Active Substance: CEFTRIAXONE
     Indication: PRODUCT USED FOR UNKNOWN INDICATION
  4. MULTIPLE VITAMIN [Concomitant]
     Active Substance: VITAMINS
     Indication: PRODUCT USED FOR UNKNOWN INDICATION
     Route: 065
  5. PROBIOTIC [Concomitant]
     Active Substance: PROBIOTICS NOS
     Indication: PRODUCT USED FOR UNKNOWN INDICATION
     Route: 065
  6. CHOLECALCIFEROL [Concomitant]
     Active Substance: CHOLECALCIFEROL
     Indication: PRODUCT USED FOR UNKNOWN INDICATION
     Route: 065
  7. HUMIRA [Suspect]
     Active Substance: ADALIMUMAB
     Indication: CROHN^S DISEASE
     Route: 058
  8. OMEGA?3 FATTY ACIDS [Concomitant]
     Active Substance: OMEGA-3 FATTY ACIDS
     Indication: PRODUCT USED FOR UNKNOWN INDICATION
     Route: 065

REACTIONS (15)
  - Small intestinal obstruction [Unknown]
  - Stoma site inflammation [Unknown]
  - Urine analysis abnormal [Unknown]
  - Protein urine present [Unknown]
  - Urine leukocyte esterase positive [Unknown]
  - Colonic fistula [Unknown]
  - Nitrite urine present [Unknown]
  - Urine ketone body present [Unknown]
  - Gastrointestinal stoma output decreased [Unknown]
  - Anal fistula [Recovering/Resolving]
  - Anal fistula [Not Recovered/Not Resolved]
  - Abdominal adhesions [Unknown]
  - Bacterial test positive [Unknown]
  - Abdominal adhesions [Unknown]
  - Urine abnormality [Unknown]

NARRATIVE: CASE EVENT DATE: 2015
